FAERS Safety Report 13621100 (Version 2)
Quarter: 2017Q4

REPORT INFORMATION
  Report Type: Spontaneous
  Country: US (occurrence: US)
  Receive Date: 20170607
  Receipt Date: 20171205
  Transmission Date: 20180320
  Serious: No
  Sender: FDA-Public Use
  Company Number: US-TEVA-770140USA

PATIENT
  Sex: Male

DRUGS (2)
  1. ROSUVASTATIN. [Concomitant]
     Active Substance: ROSUVASTATIN
     Dosage: 10 MILLIGRAM DAILY;
  2. PROPAFENONE. [Suspect]
     Active Substance: PROPAFENONE
     Indication: HEART RATE IRREGULAR
     Dosage: 650 MILLIGRAM DAILY;
     Route: 065
     Dates: start: 201701

REACTIONS (6)
  - Irritability [Not Recovered/Not Resolved]
  - Vitreous floaters [Not Recovered/Not Resolved]
  - Balance disorder [Not Recovered/Not Resolved]
  - Erectile dysfunction [Not Recovered/Not Resolved]
  - Oropharyngeal pain [Not Recovered/Not Resolved]
  - Chest pain [Not Recovered/Not Resolved]

NARRATIVE: CASE EVENT DATE: 20170515
